FAERS Safety Report 4303281-8 (Version None)
Quarter: 2004Q1

REPORT INFORMATION
  Report Type: 
  Country: None (occurrence: None)
  Receive Date: 20040223
  Receipt Date: 20040213
  Transmission Date: 20041129
  Serious: No
  Sender: FDA-Public Use
  Company Number: 2004196769IT

PATIENT
  Age: 18 Year
  Sex: Female

DRUGS (4)
  1. ZYVOX [Suspect]
     Indication: INFECTION
     Dosage: SINGLE, IV
     Route: 042
     Dates: start: 20040122, end: 20040122
  2. ENOXAPARIN SODIUM [Concomitant]
  3. FUROSEMIDE [Concomitant]
  4. OMEPRAZOLE [Concomitant]

REACTIONS (8)
  - BRONCHOSPASM [None]
  - DRUG HYPERSENSITIVITY [None]
  - ERYTHEMA [None]
  - EXANTHEM [None]
  - HEART RATE INCREASED [None]
  - HYPOTENSION [None]
  - OXYGEN SATURATION DECREASED [None]
  - PHARMACEUTICAL PRODUCT COMPLAINT [None]
